FAERS Safety Report 4603724-6 (Version None)
Quarter: 2005Q1

REPORT INFORMATION
  Report Type: 
  Country: None (occurrence: None)
  Receive Date: 20050308
  Receipt Date: 20050222
  Transmission Date: 20050727
  Serious: Yes (Hospitalization, Other)
  Sender: FDA-Public Use
  Company Number: 0500003EN0010P

PATIENT
  Age: 11 Year
  Sex: Male

DRUGS (1)
  1. ADAGEN [Suspect]
     Indication: COMBINED IMMUNODEFICIENCY
     Dosage: 500 UNITS IM 2X/WEEKLY
     Route: 030
     Dates: start: 19931217

REACTIONS (2)
  - BURKITT'S LYMPHOMA [None]
  - CENTRAL NERVOUS SYSTEM LYMPHOMA [None]
